FAERS Safety Report 9345301 (Version 3)
Quarter: 2014Q2

REPORT INFORMATION
  Report Type: Spontaneous
  Country: US (occurrence: US)
  Receive Date: 20130613
  Receipt Date: 20140521
  Transmission Date: 20141212
  Serious: Yes (Hospitalization)
  Sender: FDA-Public Use
  Company Number: US-B.I. PHARMACEUTICALS,INC./RIDGEFIELD-2013-BI-16278BP

PATIENT
  Sex: Female
  Weight: 115.21 kg

DRUGS (8)
  1. PRADAXA [Suspect]
     Indication: CEREBROVASCULAR ACCIDENT PROPHYLAXIS
     Dosage: 150 MG
     Route: 048
     Dates: start: 20110425, end: 20120430
  2. PRADAXA [Suspect]
     Indication: THROMBOSIS PROPHYLAXIS
  3. PRADAXA [Suspect]
     Indication: ATRIAL FIBRILLATION
  4. MULTIVITAMINS [Concomitant]
     Route: 065
  5. CHLORTHALIDONE [Concomitant]
     Dosage: 25 MG
     Route: 048
  6. DIGOXIN [Concomitant]
     Dosage: 250 MCG
     Route: 048
  7. DILTIAZEM ER [Concomitant]
     Dosage: 240 MG
     Route: 048
  8. ACIDOPHILUS [Concomitant]
     Dosage: 220 MG
     Route: 048

REACTIONS (3)
  - Gastrointestinal haemorrhage [Unknown]
  - Haemorrhagic anaemia [Recovered/Resolved]
  - Acute myocardial infarction [Unknown]
